FAERS Safety Report 16055752 (Version 1)
Quarter: 2019Q1

REPORT INFORMATION
  Report Type: Spontaneous
  Country: GB (occurrence: GB)
  Receive Date: 20190311
  Receipt Date: 20190311
  Transmission Date: 20190418
  Serious: Yes (Other)
  Sender: FDA-Public Use
  Company Number: GB-ACCORD-111818

PATIENT
  Age: 52 Year
  Sex: Female

DRUGS (4)
  1. OLEA EUROPAEA [Concomitant]
  2. ONDANSETRON [Suspect]
     Active Substance: ONDANSETRON
     Indication: PROPHYLAXIS OF NAUSEA AND VOMITING
     Route: 042
  3. PRIMROSE [Concomitant]
  4. LINSEED [Concomitant]

REACTIONS (3)
  - Facial paralysis [Recovered/Resolved]
  - Seizure [Recovered/Resolved]
  - Muscle twitching [Recovered/Resolved]
